FAERS Safety Report 8302409-2 (Version None)
Quarter: 2012Q2

REPORT INFORMATION
  Report Type: 
  Country: None (occurrence: None)
  Receive Date: 20120420
  Receipt Date: 20120407
  Transmission Date: 20120825
  Serious: Yes (Death)
  Sender: FDA-Public Use
  Company Number: HU-BAXTER-2012BAX002683

PATIENT
  Age: 86 Year
  Sex: Male

DRUGS (4)
  1. DIANEAL PD-1 W/ DEXTROSE 1.5% IN PLASTIC CONTAINER [Suspect]
     Route: 033
     Dates: start: 20050425
  2. EPOGEN [Concomitant]
     Route: 065
  3. EXTRANEAL [Suspect]
     Route: 033
     Dates: start: 20050425
  4. IRON [Concomitant]
     Route: 042

REACTIONS (1)
  - RECTAL CANCER STAGE 0 [None]
